FAERS Safety Report 9858820 (Version 1)
Quarter: 2014Q1

REPORT INFORMATION
  Report Type: Spontaneous
  Country: US (occurrence: None)
  Receive Date: 20140130
  Receipt Date: 20140130
  Transmission Date: 20141002
  Serious: No
  Sender: FDA-Public Use
  Company Number: None

PATIENT
  Age: 88 Year
  Sex: Female
  Weight: 56.7 kg

DRUGS (1)
  1. SYNVISC-ONE [Suspect]
     Indication: OSTEOARTHRITIS
     Dates: start: 20140115

REACTIONS (3)
  - Gait disturbance [None]
  - Pain [None]
  - Wheelchair user [None]
